FAERS Safety Report 13203239 (Version 2)
Quarter: 2017Q1

REPORT INFORMATION
  Report Type: Spontaneous
  Country: US (occurrence: US)
  Receive Date: 20170209
  Receipt Date: 20170213
  Transmission Date: 20170428
  Serious: Yes (Life-Threatening, Hospitalization)
  Sender: FDA-Public Use
  Company Number: US-BAYER-2017-020557

PATIENT
  Age: 65 Year
  Sex: Male

DRUGS (1)
  1. NEXAVAR [Suspect]
     Active Substance: SORAFENIB
     Indication: HEPATOCELLULAR CARCINOMA
     Dosage: 200 MG, BID, WITHOUT FOOD OR 1 HOUR BEFORE OR 2 HOURS AFTER MEAL
     Route: 048

REACTIONS (1)
  - Myocardial infarction [Not Recovered/Not Resolved]

NARRATIVE: CASE EVENT DATE: 20161231
